FAERS Safety Report 9917037 (Version 2)
Quarter: 2014Q1

REPORT INFORMATION
  Report Type: Spontaneous
  Country: GB (occurrence: GB)
  Receive Date: 20140221
  Receipt Date: 20140326
  Transmission Date: 20141002
  Serious: Yes (Death)
  Sender: FDA-Public Use
  Company Number: GB-GLAXOSMITHKLINE-B0970018A

PATIENT
  Age: 29 Year
  Sex: Female
  Weight: 46 kg

DRUGS (3)
  1. PAZOPANIB [Suspect]
     Indication: SARCOMA METASTATIC
     Route: 048
     Dates: start: 20130808, end: 20140102
  2. DOMPERIDONE [Concomitant]
  3. LOPERAMIDE [Concomitant]

REACTIONS (3)
  - Pneumothorax [Fatal]
  - Dyspnoea [Not Recovered/Not Resolved]
  - Pleural disorder [Not Recovered/Not Resolved]
